APPROVED DRUG PRODUCT: TRANEXAMIC ACID
Active Ingredient: TRANEXAMIC ACID
Strength: 100MG/ML
Dosage Form/Route: INJECTABLE;INJECTION
Application: A091596 | Product #001
Applicant: FRESENIUS KABI USA LLC
Approved: Mar 2, 2012 | RLD: No | RS: No | Type: DISCN